FAERS Safety Report 7770379-1 (Version None)
Quarter: 2011Q3

REPORT INFORMATION
  Report Type: 
  Country: None (occurrence: None)
  Receive Date: 20110922
  Receipt Date: 20110531
  Transmission Date: 20111222
  Serious: No
  Sender: FDA-Public Use
  Company Number: US-ASTRAZENECA-2011SE33472

PATIENT
  Age: 45 Year
  Sex: Female
  Weight: 70.3 kg

DRUGS (5)
  1. SEROQUEL XR [Suspect]
     Route: 048
  2. METFORMIN [Concomitant]
     Indication: DIABETES MELLITUS
  3. XANAX [Concomitant]
     Indication: ANXIETY
  4. SEROQUEL XR [Suspect]
     Indication: BIPOLAR DISORDER
     Route: 048
     Dates: start: 20090101
  5. SEROQUEL XR [Suspect]
     Dosage: ONLY TAKES HALF A TABLET
     Route: 048

REACTIONS (5)
  - TACHYPHRENIA [None]
  - INSOMNIA [None]
  - WRONG TECHNIQUE IN DRUG USAGE PROCESS [None]
  - DRUG DOSE OMISSION [None]
  - DRUG INEFFECTIVE [None]
